FAERS Safety Report 9859076 (Version 2)
Quarter: 2014Q1

REPORT INFORMATION
  Report Type: Spontaneous
  Country: US (occurrence: US)
  Receive Date: 20140131
  Receipt Date: 20140324
  Transmission Date: 20141002
  Serious: Yes (Life-Threatening, Hospitalization, Other)
  Sender: FDA-Public Use
  Company Number: US-BAYER-2014-010946

PATIENT
  Age: 49 Year
  Sex: Female

DRUGS (7)
  1. CIPRO [Suspect]
     Indication: CLOSTRIDIUM DIFFICILE INFECTION
  2. VANCOMYCIN [Suspect]
     Indication: SEPSIS
     Route: 042
  3. VANCOMYCIN [Suspect]
     Indication: URINARY TRACT INFECTION
  4. VANCOMYCIN [Suspect]
     Indication: PYREXIA
  5. ROCEPHIN [Suspect]
     Indication: SEPSIS
  6. ROCEPHIN [Suspect]
     Indication: URINARY TRACT INFECTION
  7. ROCEPHIN [Suspect]
     Indication: PYREXIA

REACTIONS (8)
  - Cardiac arrest [Recovered/Resolved]
  - Spinal fusion surgery [None]
  - Weight decreased [None]
  - Bipolar disorder [None]
  - Dysgeusia [None]
  - Muscle atrophy [None]
  - Dry skin [None]
  - Clostridium difficile infection [None]
